FAERS Safety Report 11686992 (Version 2)
Quarter: 2015Q4

REPORT INFORMATION
  Report Type: Spontaneous
  Country: FR (occurrence: FR)
  Receive Date: 20151030
  Receipt Date: 20151030
  Transmission Date: 20160304
  Serious: Yes (Hospitalization)
  Sender: FDA-Public Use
  Company Number: FR-SA-2015SA173341

PATIENT
  Age: 95 Year
  Sex: Female

DRUGS (11)
  1. CORDARONE [Suspect]
     Active Substance: AMIODARONE HYDROCHLORIDE
     Route: 048
     Dates: end: 201509
  2. DEBRIDAT [Concomitant]
     Active Substance: TRIMEBUTINE MALEATE
  3. BISOCE [Suspect]
     Active Substance: BISOPROLOL
     Route: 048
     Dates: end: 20150905
  4. DUROGESIC [Suspect]
     Active Substance: FENTANYL
     Route: 062
  5. INEXIUM [Concomitant]
     Active Substance: ESOMEPRAZOLE
  6. LASILIX [Suspect]
     Active Substance: FUROSEMIDE
     Route: 048
  7. ACTISKENAN [Suspect]
     Active Substance: MORPHINE SULFATE
     Dosage: ACTISKENAN 5 MG, CAPSULE
     Route: 048
     Dates: end: 201509
  8. MOVICOL [Concomitant]
     Active Substance: POLYETHYLENE GLYCOL 3350\POTASSIUM CHLORIDE\SODIUM BICARBONATE\SODIUM CHLORIDE
  9. PARACETAMOL [Concomitant]
     Active Substance: ACETAMINOPHEN
  10. DUROGESIC [Suspect]
     Active Substance: FENTANYL
     Dosage: DUROGESIC 12 MCG/H (2.1 MG/5.25 CM2), TRANSDERMAL SYSTEM
     Route: 062
  11. FUMAFER [Concomitant]
     Active Substance: FERROUS FUMARATE

REACTIONS (6)
  - Hypotension [Recovered/Resolved with Sequelae]
  - Vertigo [Recovered/Resolved with Sequelae]
  - Pelvic fracture [Recovered/Resolved with Sequelae]
  - Femur fracture [Recovered/Resolved with Sequelae]
  - Fall [Recovered/Resolved with Sequelae]
  - Malaise [Recovered/Resolved with Sequelae]

NARRATIVE: CASE EVENT DATE: 2015
